FAERS Safety Report 9524617 (Version 1)
Quarter: 2013Q1

REPORT INFORMATION
  Report Type: Spontaneous
  Country: US (occurrence: None)
  Receive Date: 20130313
  Receipt Date: 20130313
  Transmission Date: 20140127
  Serious: No
  Sender: FDA-Public Use
  Company Number: 1000039600

PATIENT
  Age: 58 Year
  Sex: Female

DRUGS (10)
  1. SAVELLA [Suspect]
     Indication: BACK PAIN
     Route: 048
     Dates: start: 20120912, end: 20120912
  2. ULTRAM (TRAMADOL HYDROCHLORIDE) [Suspect]
     Indication: BACK PAIN
     Dates: end: 20121016
  3. VICODIN (ACETAMINOPHEN, HYDROCODONE) (ACETAMINOPHEN, HYDROCODONE) [Concomitant]
  4. GABAPENTIN (GABAPENTIN) (GABAPENTIN) [Concomitant]
  5. NAPROXEN (NAPROXEN) (NAPROXEN) [Concomitant]
  6. BACLOFEN (BACLOFEN) (BACLOFEN) [Concomitant]
  7. RANITIDINE (RANITIDINE) (RANITIDINE) [Concomitant]
  8. LEVOTHYROXINE (LEVOTHYROXINE SODIUM) (LEVOTHYROXINE SODIUM) [Concomitant]
  9. LISINOPRIL (LISINOPRIL) (LISINOPRIL) [Concomitant]
  10. HYDROCHLOROTHIAZIDE (HYDROCHLOROTHIAZIDE) (HYDROCHLOROTHIAZIDE) [Concomitant]

REACTIONS (6)
  - Visual impairment [None]
  - Tremor [None]
  - Paraesthesia [None]
  - Vomiting [None]
  - Hyperhidrosis [None]
  - Off label use [None]
